FAERS Safety Report 10747183 (Version 1)
Quarter: 2015Q1

REPORT INFORMATION
  Report Type: Spontaneous
  Country: US (occurrence: US)
  Receive Date: 20150129
  Receipt Date: 20150129
  Transmission Date: 20150721
  Serious: Yes (Other)
  Sender: FDA-Public Use
  Company Number: US-BEH-2011027642

PATIENT
  Age: 36 Year
  Sex: Female
  Weight: 48 kg

DRUGS (6)
  1. HIZENTRA [Suspect]
     Active Substance: HUMAN IMMUNOGLOBULIN G
     Route: 058
  2. HIZENTRA [Suspect]
     Active Substance: HUMAN IMMUNOGLOBULIN G
     Route: 058
  3. HIZENTRA [Suspect]
     Active Substance: HUMAN IMMUNOGLOBULIN G
     Route: 058
  4. HIZENTRA [Suspect]
     Active Substance: HUMAN IMMUNOGLOBULIN G
     Indication: DEMYELINATING POLYNEUROPATHY
     Route: 058
  5. HIZENTRA [Suspect]
     Active Substance: HUMAN IMMUNOGLOBULIN G
     Dosage: 75 ML OVER 1-2.5 HOURS (20% CONCENTRATION) IN 4 SITES
     Route: 058
     Dates: start: 20110129
  6. HIZENTRA [Suspect]
     Active Substance: HUMAN IMMUNOGLOBULIN G
     Route: 058

REACTIONS (9)
  - Blister [Not Recovered/Not Resolved]
  - Migraine [Not Recovered/Not Resolved]
  - Skin burning sensation [Unknown]
  - Meningitis aseptic [Unknown]
  - Gingival swelling [Unknown]
  - Herpes zoster [Unknown]
  - Oral mucosal blistering [Not Recovered/Not Resolved]
  - Pruritus [Unknown]
  - Lymphadenopathy [Not Recovered/Not Resolved]

NARRATIVE: CASE EVENT DATE: 20110201
